FAERS Safety Report 17207594 (Version 2)
Quarter: 2020Q2

REPORT INFORMATION
  Report Type: Spontaneous
  Country: CA (occurrence: CA)
  Receive Date: 20191227
  Receipt Date: 20200625
  Transmission Date: 20200713
  Serious: Yes (Other)
  Sender: FDA-Public Use
  Company Number: CA-PFIZER INC-2019556510

PATIENT
  Age: 56 Year
  Sex: Male

DRUGS (3)
  1. METHOTREXATE SODIUM. [Suspect]
     Active Substance: METHOTREXATE SODIUM
     Dosage: UNK
     Dates: start: 201711, end: 201802
  2. FOLIC ACID. [Concomitant]
     Active Substance: FOLIC ACID
     Dosage: UNK
  3. PREDNISONE. [Concomitant]
     Active Substance: PREDNISONE
     Dosage: TAPER

REACTIONS (7)
  - Syncope [Unknown]
  - Drug ineffective [Unknown]
  - Mental impairment [Unknown]
  - Dermatitis psoriasiform [Unknown]
  - Drug intolerance [Unknown]
  - Malaise [Unknown]
  - Hypotension [Unknown]
